FAERS Safety Report 25698023 (Version 2)
Quarter: 2025Q3

REPORT INFORMATION
  Report Type: Spontaneous
  Country: EU (occurrence: EU)
  Receive Date: 20250819
  Receipt Date: 20250917
  Transmission Date: 20251021
  Serious: Yes (Other)
  Sender: JOHNSON AND JOHNSON
  Company Number: EU-JNJFOC-20250821910

PATIENT

DRUGS (2)
  1. XARELTO [Suspect]
     Active Substance: RIVAROXABAN
     Indication: Prophylaxis
     Route: 048
  2. METFORMIN [Concomitant]
     Active Substance: METFORMIN HYDROCHLORIDE
     Indication: Product used for unknown indication

REACTIONS (6)
  - Abdominal wall abscess [Unknown]
  - Granuloma skin [Unknown]
  - Abdominal distension [Unknown]
  - Impaired healing [Unknown]
  - Erythema [Unknown]
  - Pain [Unknown]

NARRATIVE: CASE EVENT DATE: 20180401
